FAERS Safety Report 10349982 (Version 1)
Quarter: 2014Q3

REPORT INFORMATION
  Report Type: Spontaneous
  Country: US (occurrence: None)
  Receive Date: 20140728
  Receipt Date: 20140728
  Transmission Date: 20150326
  Serious: Yes (Disabling)
  Sender: FDA-Public Use
  Company Number: None

PATIENT
  Age: 65 Year
  Sex: Female
  Weight: 90.72 kg

DRUGS (1)
  1. BELVIQ [Suspect]
     Active Substance: LORCASERIN HYDROCHLORIDE
     Indication: APPETITE DISORDER
     Dosage: 1 PILL
     Route: 048
     Dates: start: 20140718, end: 20140719

REACTIONS (9)
  - Fluid retention [None]
  - Hallucination [None]
  - Musculoskeletal pain [None]
  - Hypersensitivity [None]
  - Joint swelling [None]
  - Arthralgia [None]
  - Pain [None]
  - Swelling face [None]
  - Somnolence [None]

NARRATIVE: CASE EVENT DATE: 20140720
